FAERS Safety Report 4592155-3 (Version None)
Quarter: 2005Q1

REPORT INFORMATION
  Report Type: 
  Country: None (occurrence: None)
  Receive Date: 20050226
  Receipt Date: 20041112
  Transmission Date: 20050727
  Serious: Yes (Hospitalization, Disabling)
  Sender: FDA-Public Use
  Company Number: US-MERCK-0411USA02287

PATIENT
  Age: 55 Year
  Sex: Male
  Weight: 170 kg

DRUGS (1)
  1. VIOXX [Suspect]
     Indication: OSTEOARTHRITIS
     Route: 048
     Dates: start: 20000101

REACTIONS (8)
  - CARDIAC DISORDER [None]
  - COUGH [None]
  - DYSPNOEA [None]
  - LIPIDS INCREASED [None]
  - MITRAL VALVE PROLAPSE [None]
  - MYALGIA [None]
  - OEDEMA PERIPHERAL [None]
  - TENDONITIS [None]
